FAERS Safety Report 20141541 (Version 1)
Quarter: 2021Q4

REPORT INFORMATION
  Report Type: Spontaneous
  Country: US (occurrence: None)
  Receive Date: 20211202
  Receipt Date: 20211202
  Transmission Date: 20220303
  Serious: No
  Sender: FDA-Public Use
  Company Number: None

PATIENT
  Age: 24 Year
  Sex: Female
  Weight: 85.5 kg

DRUGS (3)
  1. REGEN-COV [Suspect]
     Active Substance: CASIRIVIMAB\IMDEVIMAB
     Indication: COVID-19
     Dosage: OTHER QUANTITY : 4 INJECTION(S);?
     Route: 058
     Dates: start: 20211201, end: 20211201
  2. NEXPLANON [Concomitant]
     Active Substance: ETONOGESTREL
  3. VIVISCAL [Concomitant]

REACTIONS (2)
  - Urticaria [None]
  - Injection site urticaria [None]

NARRATIVE: CASE EVENT DATE: 20211201
